FAERS Safety Report 5303262-1 (Version None)
Quarter: 2007Q2

REPORT INFORMATION
  Report Type: 
  Country: None (occurrence: None)
  Receive Date: 20070420
  Receipt Date: 20070411
  Transmission Date: 20071010
  Serious: Yes (Other)
  Sender: FDA-Public Use
  Company Number: JP-ABBOTT-07P-087-0364829-00

PATIENT
  Age: 27 Year
  Sex: Male

DRUGS (4)
  1. RITONAVIR [Suspect]
     Indication: HIV INFECTION
     Dosage: NOT REPORTED
     Dates: start: 20060906
  2. TENOFOVIR [Suspect]
     Indication: HIV INFECTION
     Dosage: NOT REPORTED
     Dates: start: 20060906
  3. LAMIVUDINE [Suspect]
     Indication: HIV INFECTION
     Dosage: NOT REPORTED
     Dates: start: 20060906
  4. FOSAMPRENAVIR [Suspect]
     Indication: HIV INFECTION
     Dosage: NOT REPORTED
     Dates: start: 20060906

REACTIONS (1)
  - APPENDICITIS [None]
